FAERS Safety Report 20047753 (Version 1)
Quarter: 2021Q4

REPORT INFORMATION
  Report Type: Spontaneous
  Country: US (occurrence: None)
  Receive Date: 20211109
  Receipt Date: 20211109
  Transmission Date: 20220304
  Serious: No
  Sender: FDA-Public Use
  Company Number: None

PATIENT
  Sex: Male

DRUGS (1)
  1. SKYRIZI [Suspect]
     Active Substance: RISANKIZUMAB-RZAA
     Indication: Psoriasis
     Dosage: OTHER QUANTITY : 1 PEN;?OTHER FREQUENCY : EVERY 12 WEEKS;?
     Route: 058
     Dates: start: 202101

REACTIONS (4)
  - Exposure via skin contact [None]
  - Injection site haemorrhage [None]
  - Drug dose omission by device [None]
  - Device malfunction [None]
